FAERS Safety Report 8767304 (Version 1)
Quarter: 2012Q4

REPORT INFORMATION
  Report Type: 
  Country: NL (occurrence: NL)
  Receive Date: 20120904
  Receipt Date: 20120904
  Transmission Date: 20130627
  Serious: Yes (Other)
  Sender: FDA-Public Use
  Company Number: NL-GLAXOSMITHKLINE-B0827278A

PATIENT
  Age: 81 Year
  Sex: Male
  Weight: 50 kg

DRUGS (1)
  1. COMBODART [Suspect]
     Indication: URINARY RETENTION
     Dosage: .5MG Per day
     Route: 048
     Dates: start: 20120803, end: 20120813

REACTIONS (1)
  - Hallucination [Recovered/Resolved]
